FAERS Safety Report 15155883 (Version 1)
Quarter: 2018Q3

REPORT INFORMATION
  Report Type: Spontaneous
  Country: US (occurrence: US)
  Receive Date: 20180717
  Receipt Date: 20180717
  Transmission Date: 20181010
  Serious: Yes (Hospitalization)
  Sender: FDA-Public Use
  Company Number: US-US WORLDMEDS, LLC-STA_00020431

PATIENT
  Sex: Male
  Weight: 88.45 kg

DRUGS (2)
  1. APOMORPHINE HYDROCHLORIDE [Suspect]
     Active Substance: APOMORPHINE HYDROCHLORIDE
     Indication: PARKINSON^S DISEASE
     Dosage: 0.3 ML,0.2 ML, 2 TIMES PER DAY
     Route: 058
     Dates: start: 201604
  2. RYTARY [Concomitant]
     Active Substance: CARBIDOPA\LEVODOPA
     Indication: PRODUCT USED FOR UNKNOWN INDICATION
     Dosage: 245 MG, 3 CAPSULES 4 TIMES A DAY

REACTIONS (2)
  - Atrial fibrillation [Unknown]
  - Dyspnoea [Recovered/Resolved]
